FAERS Safety Report 24662003 (Version 1)
Quarter: 2024Q4

REPORT INFORMATION
  Report Type: Spontaneous
  Country: CN (occurrence: CN)
  Receive Date: 20241125
  Receipt Date: 20241125
  Transmission Date: 20250115
  Serious: Yes (Other)
  Sender: EISAI
  Company Number: CN-Eisai-EC-2024-179342

PATIENT
  Age: 40 Year
  Sex: Female
  Weight: 55 kg

DRUGS (2)
  1. HALAVEN [Suspect]
     Active Substance: ERIBULIN MESYLATE
     Indication: Breast cancer
     Dosage: DOSE UNKNOWN
     Route: 042
  2. HALAVEN [Suspect]
     Active Substance: ERIBULIN MESYLATE
     Route: 042
     Dates: end: 20241001

REACTIONS (1)
  - Myelosuppression [Recovering/Resolving]
